FAERS Safety Report 7648879-4 (Version None)
Quarter: 2011Q3

REPORT INFORMATION
  Report Type: 
  Country: None (occurrence: None)
  Receive Date: 20110801
  Receipt Date: 20110726
  Transmission Date: 20111222
  Serious: Yes (Life-Threatening, Hospitalization)
  Sender: FDA-Public Use
  Company Number: PHHY2011DK66996

PATIENT
  Sex: Male
  Weight: 127 kg

DRUGS (9)
  1. WARFARIN SODIUM [Concomitant]
     Indication: ANTICOAGULANT THERAPY
     Dosage: UNK UKN, UNK
  2. DICLOXACILLIN [Suspect]
     Indication: ERYSIPELAS
     Dosage: 1 G, TID
     Route: 048
     Dates: start: 20110622, end: 20110703
  3. DIGOXIN [Concomitant]
     Indication: ATRIAL FIBRILLATION
     Dosage: UNK UKN, UNK
  4. VIAGRA [Concomitant]
     Dosage: UNK UKN, UNK
  5. LISINOPRIL [Concomitant]
     Indication: HYPERTENSION
     Dosage: UNK UKN, UNK
  6. DIMITONE [Concomitant]
     Indication: HYPERTENSION
     Dosage: UNK UKN, UNK
  7. PRIMCILLIN [Concomitant]
     Indication: ERYSIPELAS
     Dosage: 2400 MG
     Dates: start: 20110622
  8. PRAVASTATIN [Concomitant]
     Indication: HYPERCHOLESTEROLAEMIA
     Dosage: UNK UKN, UNK
  9. CENTYL MED KALIUMKLORID [Concomitant]
     Indication: HYPERTENSION
     Dosage: UNK UKN, UNK

REACTIONS (7)
  - NAUSEA [None]
  - DYSPNOEA [None]
  - HAEMOGLOBIN DECREASED [None]
  - TUBULOINTERSTITIAL NEPHRITIS [None]
  - FATIGUE [None]
  - MALAISE [None]
  - WEIGHT DECREASED [None]
